FAERS Safety Report 8432797-8 (Version None)
Quarter: 2012Q2

REPORT INFORMATION
  Report Type: 
  Country: None (occurrence: None)
  Receive Date: 20120613
  Receipt Date: 20120606
  Transmission Date: 20120825
  Serious: No
  Sender: FDA-Public Use
  Company Number: US-PFIZER INC-2012136208

PATIENT
  Age: 64 Year
  Sex: Female
  Weight: 64.853 kg

DRUGS (6)
  1. LIPITOR [Suspect]
     Dosage: UNK
  2. RALOXIFENE HYDROCHLORIDE [Concomitant]
  3. ALLI [Suspect]
     Indication: WEIGHT LOSS DIET
     Dosage: UNK
     Route: 048
     Dates: start: 20080301, end: 20120401
  4. FENOFIBRIC ACID [Concomitant]
  5. OMEPRAZOLE [Concomitant]
  6. IBANDRONATE SODIUM [Concomitant]

REACTIONS (3)
  - ALANINE AMINOTRANSFERASE [None]
  - HEPATIC ENZYME INCREASED [None]
  - ASPARTATE AMINOTRANSFERASE [None]
